FAERS Safety Report 9064697 (Version 1)
Quarter: 2013Q1

REPORT INFORMATION
  Report Type: Spontaneous
  Country: US (occurrence: US)
  Receive Date: 20130129
  Receipt Date: 20130129
  Transmission Date: 20140127
  Serious: Yes (Hospitalization, Other)
  Sender: FDA-Public Use
  Company Number: US-RB-044572-12

PATIENT
  Age: 53 Year
  Sex: Male

DRUGS (5)
  1. SUBOXONE FILM [Suspect]
     Dosage: SUBOXONE FILM: 1 1/2 STRIPS DAILY / 8MG IN THE AM, 4 IN THE PM
     Route: 060
     Dates: start: 2008, end: 20120416
  2. SUBOXONE FILM [Suspect]
     Indication: DRUG DEPENDENCE
     Dosage: SUBOXONE FILM; 1 1/2 STRIPS DAILY
     Route: 060
     Dates: start: 20120421, end: 20120517
  3. SUBOXONE FILM [Suspect]
     Dosage: SUBOXONE FILM; 1 1/2 STRIPS DAILY
     Route: 060
     Dates: start: 20120522
  4. CIGARETTES [Suspect]
     Indication: NICOTINE DEPENDENCE
     Dosage: 1 PACK PER DAY
     Route: 055
  5. ATENOLOL [Concomitant]
     Indication: HYPERTENSION
     Route: 048

REACTIONS (5)
  - Wrong technique in drug usage process [Not Recovered/Not Resolved]
  - Accident [Recovered/Resolved]
  - Limb injury [Not Recovered/Not Resolved]
  - Tibia fracture [Not Recovered/Not Resolved]
  - Infection [Recovered/Resolved]
